FAERS Safety Report 9814491 (Version 1)
Quarter: 2014Q1

REPORT INFORMATION
  Report Type: Spontaneous
  Country: US (occurrence: US)
  Receive Date: 20140113
  Receipt Date: 20140113
  Transmission Date: 20141002
  Serious: No
  Sender: FDA-Public Use
  Company Number: US-BIOGENIDEC-2013BI064703

PATIENT
  Age: 41 Year
  Sex: Male

DRUGS (6)
  1. TECFIDERA [Suspect]
     Indication: MULTIPLE SCLEROSIS
  2. TECFIDERA [Suspect]
     Indication: MULTIPLE SCLEROSIS
     Route: 048
     Dates: start: 20130621
  3. TECFIDERA [Suspect]
     Indication: MULTIPLE SCLEROSIS
     Route: 048
     Dates: start: 201306
  4. ADVIL [Concomitant]
  5. VITAMIN D3 [Concomitant]
  6. AMPYRA [Concomitant]
     Dates: start: 2013

REACTIONS (3)
  - Headache [Unknown]
  - Flatulence [Unknown]
  - Flushing [Unknown]
